FAERS Safety Report 8044817-3 (Version None)
Quarter: 2012Q1

REPORT INFORMATION
  Report Type: 
  Country: None (occurrence: None)
  Receive Date: 20120113
  Receipt Date: 20120109
  Transmission Date: 20120608
  Serious: Yes (Other)
  Sender: FDA-Public Use
  Company Number: AR-ROCHE-1008737

PATIENT
  Sex: Female

DRUGS (1)
  1. LUCENTIS [Suspect]
     Indication: MACULOPATHY
     Dosage: 1 AMPOULE PER MONTH
     Route: 050
     Dates: start: 20100810

REACTIONS (4)
  - FOREIGN BODY IN EYE [None]
  - EYE HAEMORRHAGE [None]
  - EYE PAIN [None]
  - VISUAL IMPAIRMENT [None]
